FAERS Safety Report 14956808 (Version 1)
Quarter: 2018Q2

REPORT INFORMATION
  Report Type: Spontaneous
  Country: US (occurrence: US)
  Receive Date: 20180509
  Receipt Date: 20180509
  Transmission Date: 20180711
  Serious: No
  Sender: FDA-Public Use
  Company Number: None

PATIENT
  Age: 57 Year
  Sex: Male

DRUGS (1)
  1. SUTENT [Suspect]
     Active Substance: SUNITINIB MALATE

REACTIONS (5)
  - Depressed level of consciousness [None]
  - Hair colour changes [None]
  - Fatigue [None]
  - Upper respiratory tract infection [None]
  - Nausea [None]

NARRATIVE: CASE EVENT DATE: 20180509
